FAERS Safety Report 5897238-3 (Version None)
Quarter: 2008Q3

REPORT INFORMATION
  Report Type: 
  Country: None (occurrence: None)
  Receive Date: 20080923
  Receipt Date: 20080912
  Transmission Date: 20090109
  Serious: Yes (Hospitalization)
  Sender: FDA-Public Use
  Company Number: 2008-03026

PATIENT
  Age: 57 Year
  Sex: Female
  Weight: 46 kg

DRUGS (8)
  1. VELCADE [Suspect]
     Indication: MULTIPLE MYELOMA
     Dosage: 2 MG, INTRAVENOUS
     Route: 042
     Dates: start: 20080623, end: 20080804
  2. ACETAMINOPHEN [Concomitant]
  3. TRAMADOL HCL [Concomitant]
  4. SLOW-K [Concomitant]
  5. PANTOPRAZOLE SODIUM [Concomitant]
  6. PRIMPERAN TAB [Concomitant]
  7. METRONIDAZOLE [Concomitant]
  8. LOPERAMIDE [Concomitant]

REACTIONS (5)
  - ASTHENIA [None]
  - CLOSTRIDIUM DIFFICILE COLITIS [None]
  - DEHYDRATION [None]
  - MALAISE [None]
  - NAUSEA [None]
